FAERS Safety Report 11290121 (Version 1)
Quarter: 2015Q3

REPORT INFORMATION
  Report Type: Report from Study
  Country: US (occurrence: US)
  Receive Date: 20150721
  Receipt Date: 20150721
  Transmission Date: 20151125
  Serious: Yes (Hospitalization)
  Sender: FDA-Public Use
  Company Number: US-009507513-1507USA006972

PATIENT
  Age: 81 Year
  Sex: Female
  Weight: 49.38 kg

DRUGS (7)
  1. CIPROFLOXACIN. [Concomitant]
     Active Substance: CIPROFLOXACIN
     Indication: STOMA SITE ERYTHEMA
     Dosage: 1 DF, QD
     Route: 048
     Dates: start: 20140806
  2. SINEMET [Suspect]
     Active Substance: CARBIDOPA\LEVODOPA
     Indication: PARKINSON^S DISEASE
     Dosage: 125 MG, PRN
     Route: 048
  3. OXYBUTIN [Concomitant]
     Active Substance: OXYBUTYNIN
     Indication: URINARY INCONTINENCE
     Dosage: 1 DF, Q4D
     Route: 062
     Dates: start: 20131020
  4. DUODOPA [Suspect]
     Active Substance: CARBIDOPA\LEVODOPA
     Indication: PARKINSON^S DISEASE
     Dosage: CONTINUOUS, ROUTE: PERCUTANEOUS J TUBE
  5. NEOTRACIN (BACITRACIN ZINC (+) NEOMYCIN SULFATE (+) POLYMYXIN B SULFAT [Concomitant]
     Indication: STOMA SITE ERYTHEMA
     Route: 061
  6. LUTEIN [Concomitant]
     Active Substance: LUTEIN
     Indication: MACULAR DEGENERATION
     Dosage: 2 DF, QD
     Route: 048
     Dates: start: 20150524
  7. SILVADENE [Concomitant]
     Active Substance: SILVER SULFADIAZINE
     Indication: STOMA SITE ERYTHEMA
     Dosage: 1 DF, PRN (1 DAB, AS REQUIRED)
     Route: 061
     Dates: start: 20140702

REACTIONS (2)
  - Fall [Recovered/Resolved]
  - Tibia fracture [Unknown]

NARRATIVE: CASE EVENT DATE: 20150106
